FAERS Safety Report 12732163 (Version 1)
Quarter: 2016Q3

REPORT INFORMATION
  Report Type: Spontaneous
  Country: US (occurrence: US)
  Receive Date: 20160909
  Receipt Date: 20160909
  Transmission Date: 20161109
  Serious: No
  Sender: FDA-Public Use
  Company Number: None

PATIENT
  Age: 31 Year
  Sex: Female
  Weight: 72 kg

DRUGS (2)
  1. OXYCODONE ACETAMINOPHEN 10-325 [Suspect]
     Active Substance: ACETAMINOPHEN\OXYCODONE HYDROCHLORIDE
     Indication: BACK PAIN
     Route: 048
     Dates: start: 20160808, end: 20160908
  2. LYRICA [Concomitant]
     Active Substance: PREGABALIN

REACTIONS (6)
  - Product substitution issue [None]
  - Dyspepsia [None]
  - Abdominal pain upper [None]
  - Diarrhoea [None]
  - Headache [None]
  - Drug ineffective [None]
